FAERS Safety Report 4401979-4 (Version None)
Quarter: 2004Q2

REPORT INFORMATION
  Report Type: 
  Country: None (occurrence: None)
  Receive Date: 20040602
  Receipt Date: 20040602
  Transmission Date: 20050107
  Serious: Yes (Other)
  Sender: FDA-Public Use
  Company Number: None

PATIENT
  Age: 87 Year
  Sex: Female

DRUGS (2)
  1. NAMENDA [Suspect]
     Dosage: TABLET
  2. MERIDIA [Suspect]
     Dosage: CAPSULE

REACTIONS (1)
  - MEDICATION ERROR [None]
